FAERS Safety Report 4735267-3 (Version None)
Quarter: 2005Q3

REPORT INFORMATION
  Report Type: 
  Country: None (occurrence: None)
  Receive Date: 20050802
  Receipt Date: 20050722
  Transmission Date: 20060218
  Serious: Yes (Hospitalization)
  Sender: FDA-Public Use
  Company Number: 2005-BP-12549RO

PATIENT
  Age: 36 Year
  Sex: Female
  Weight: 77.1 kg

DRUGS (4)
  1. DEXAMETHASONE [Suspect]
     Dosage: TAPER FROM 8 MG/D TO 1 MG/D (2 MG), PO
     Route: 048
     Dates: start: 20050712, end: 20050715
  2. IBUPROFEN [Concomitant]
  3. ACONITE (ACONITUM NAPELLUS) [Concomitant]
  4. ARNICA (ARNICA MONTANA EXTRACT) [Concomitant]

REACTIONS (6)
  - BLOOD GLUCOSE INCREASED [None]
  - DEHYDRATION [None]
  - FAECES DISCOLOURED [None]
  - MUSCLE SPASMS [None]
  - PYREXIA [None]
  - WHITE BLOOD CELL COUNT INCREASED [None]
